FAERS Safety Report 6219311-2 (Version None)
Quarter: 2009Q2

REPORT INFORMATION
  Report Type: 
  Country: None (occurrence: None)
  Receive Date: 20090609
  Receipt Date: 20090529
  Transmission Date: 20091009
  Serious: Yes (Death, Hospitalization, Other)
  Sender: FDA-Public Use
  Company Number: CA-JNJFOC-20090601004

PATIENT
  Age: 56 Year
  Sex: Female
  Weight: 69.85 kg

DRUGS (3)
  1. REMICADE [Suspect]
     Indication: CROHN'S DISEASE
     Route: 042
  2. REMICADE [Suspect]
     Indication: RHEUMATOID ARTHRITIS
     Dosage: RECEIVED A TOTAL OF 24 INFUSIONS
     Route: 042
  3. CHEMOTHERAPY [Suspect]
     Indication: METASTASES TO BONE

REACTIONS (2)
  - HAEMORRHAGIC DISORDER [None]
  - METASTASES TO BONE [None]
